FAERS Safety Report 9604022 (Version 1)
Quarter: 2013Q4

REPORT INFORMATION
  Report Type: Spontaneous
  Country: CH (occurrence: CH)
  Receive Date: 20131008
  Receipt Date: 20131008
  Transmission Date: 20140711
  Serious: Yes (Other)
  Sender: FDA-Public Use
  Company Number: CH-009507513-1309CHE013098

PATIENT
  Age: 48 Year
  Sex: Female

DRUGS (3)
  1. REBETOL [Suspect]
     Indication: PNEUMONIA VIRAL
     Dosage: UNK
     Route: 048
     Dates: start: 20130606
  2. PRIVIGEN [Suspect]
     Indication: ACUTE MYELOID LEUKAEMIA
     Dosage: ONCE PER WEEK
     Route: 042
     Dates: start: 20130606
  3. MEROPENEM [Concomitant]
     Dosage: UNK
     Dates: start: 20130606

REACTIONS (2)
  - Coombs positive haemolytic anaemia [Unknown]
  - Rash erythematous [Recovered/Resolved]
